FAERS Safety Report 16805487 (Version 1)
Quarter: 2019Q3

REPORT INFORMATION
  Report Type: Spontaneous
  Country: US (occurrence: US)
  Receive Date: 20190724
  Receipt Date: 20190724
  Transmission Date: 20191005
  Serious: Yes (Death)
  Sender: FDA-Public Use
  Company Number: None

PATIENT
  Age: 12 Year
  Sex: Female
  Weight: 38.56 kg

DRUGS (1)
  1. BACTRIM DS [Suspect]
     Active Substance: SULFAMETHOXAZOLE\TRIMETHOPRIM
     Indication: PARONYCHIA
     Dosage: ?          QUANTITY:DS800/TWICE A DAY;?
     Route: 048
     Dates: start: 20160509, end: 20160514

REACTIONS (2)
  - Muscle spasms [None]
  - Hepatic necrosis [None]

NARRATIVE: CASE EVENT DATE: 20160516
